FAERS Safety Report 9784562 (Version 1)
Quarter: 2013Q4

REPORT INFORMATION
  Report Type: Report from Study
  Country: BE (occurrence: BE)
  Receive Date: 20131226
  Receipt Date: 20131226
  Transmission Date: 20140711
  Serious: Yes (Hospitalization)
  Sender: FDA-Public Use
  Company Number: BE-ABBVIE-13P-013-1181603-00

PATIENT
  Age: 51 Year
  Sex: Female

DRUGS (8)
  1. HUMIRA [Suspect]
     Indication: ANKYLOSING SPONDYLITIS
     Route: 058
     Dates: start: 20120803, end: 20130610
  2. LEDERTREXATE [Concomitant]
     Indication: RHEUMATOID ARTHRITIS
     Dosage: WEEKLY
     Dates: start: 201010
  3. FOLIC ACID [Concomitant]
     Indication: VITAMIN SUPPLEMENTATION
     Dates: start: 201010
  4. FOLIC ACID [Concomitant]
     Indication: RHEUMATOID ARTHRITIS
  5. DICLOFENAC [Concomitant]
     Indication: ARTHRALGIA
     Dosage: WHEN NECESSARY
     Dates: start: 20121130, end: 20130714
  6. DAFALGAN CODEINE [Concomitant]
     Indication: ARTHRALGIA
     Dosage: WHEN NECESSARY
     Dates: start: 20130525, end: 20130714
  7. COLCHICINE [Concomitant]
     Indication: GOUT
     Dosage: WHEN FLARE
  8. COLCHICINE [Concomitant]
     Indication: ARTHRITIS

REACTIONS (3)
  - Joint range of motion decreased [Recovering/Resolving]
  - Arthralgia [Recovering/Resolving]
  - Osteoarthritis [Recovering/Resolving]
